APPROVED DRUG PRODUCT: METARAMINOL BITARTRATE
Active Ingredient: METARAMINOL BITARTRATE
Strength: EQ 10MG BASE/ML
Dosage Form/Route: INJECTABLE;INJECTION
Application: A080722 | Product #001
Applicant: FRESENIUS KABI USA LLC
Approved: Approved Prior to Jan 1, 1982 | RLD: No | RS: No | Type: DISCN